FAERS Safety Report 8984045 (Version 1)
Quarter: 2012Q4

REPORT INFORMATION
  Report Type: Spontaneous
  Country: US (occurrence: None)
  Receive Date: 20121212
  Receipt Date: 20121212
  Transmission Date: 20130627
  Serious: Yes (Life-Threatening, Hospitalization, Other)
  Sender: FDA-Public Use
  Company Number: 2012P1066827

PATIENT
  Age: 63 Year
  Sex: Female
  Weight: 61.69 kg

DRUGS (1)
  1. ZANTAC [Suspect]
     Indication: PREMEDICATION
     Route: 042
     Dates: start: 20120918, end: 20120918

REACTIONS (1)
  - Anaphylactic shock [None]
